FAERS Safety Report 7671083-0 (Version None)
Quarter: 2011Q3

REPORT INFORMATION
  Report Type: 
  Country: None (occurrence: None)
  Receive Date: 20110808
  Receipt Date: 20110808
  Transmission Date: 20111222
  Serious: No
  Sender: FDA-Public Use
  Company Number: None

PATIENT
  Age: 83 Year
  Sex: Male
  Weight: 82.7 kg

DRUGS (1)
  1. DABIGATRAN [Suspect]
     Dates: start: 20110325, end: 20110408

REACTIONS (2)
  - VOMITING [None]
  - NAUSEA [None]
